FAERS Safety Report 4510576-1 (Version None)
Quarter: 2004Q4

REPORT INFORMATION
  Report Type: 
  Country: None (occurrence: None)
  Receive Date: 20041119
  Receipt Date: 20041103
  Transmission Date: 20050328
  Serious: No
  Sender: FDA-Public Use
  Company Number: 9169

PATIENT
  Age: 61 Year
  Sex: Male

DRUGS (1)
  1. MORPHINE [Suspect]
     Indication: ANALGESIC EFFECT
     Dosage: 20 MG ONCE;   EP

REACTIONS (5)
  - ACCIDENTAL OVERDOSE [None]
  - MEDICATION ERROR [None]
  - RESPIRATORY DEPRESSION [None]
  - SOMNOLENCE [None]
  - URINARY RETENTION [None]
